FAERS Safety Report 16332106 (Version 1)
Quarter: 2019Q2

REPORT INFORMATION
  Report Type: Spontaneous
  Country: US (occurrence: US)
  Receive Date: 20190412
  Receipt Date: 20190412
  Transmission Date: 20190711
  Serious: Yes (Hospitalization)
  Sender: FDA-Public Use
  Company Number: None

PATIENT
  Age: 66 Year
  Sex: Female

DRUGS (18)
  1. LETAIRIS [Suspect]
     Active Substance: AMBRISENTAN
     Route: 048
     Dates: start: 201007
  2. OXYCODONE [Concomitant]
     Active Substance: OXYCODONE
  3. ALBUTEROL NEB SOLN [Concomitant]
  4. WARFARIN [Suspect]
     Active Substance: WARFARIN
  5. CALCITONIN [Concomitant]
     Active Substance: CALCITONIN
  6. DOXYCYCLINE. [Concomitant]
     Active Substance: DOXYCYCLINE
  7. OYSTER SHELL CALCIUM [Concomitant]
     Active Substance: CALCIUM
  8. HYDROXYCHLOROQUINE [Concomitant]
     Active Substance: HYDROXYCHLOROQUINE
  9. POTASSIUM CHLORIDE. [Concomitant]
     Active Substance: POTASSIUM CHLORIDE
  10. FOSAMAX [Concomitant]
     Active Substance: ALENDRONATE SODIUM
  11. IMITREX [Concomitant]
     Active Substance: SUMATRIPTAN SUCCINATE
  12. MORPHINE [Concomitant]
     Active Substance: MORPHINE
  13. CLOTRIMAZOLE. [Concomitant]
     Active Substance: CLOTRIMAZOLE
  14. GABAPENTIN. [Concomitant]
     Active Substance: GABAPENTIN
  15. SILDENAFIL. [Concomitant]
     Active Substance: SILDENAFIL
  16. PREDNISONE. [Concomitant]
     Active Substance: PREDNISONE
  17. FUROSEMIDE. [Concomitant]
     Active Substance: FUROSEMIDE
  18. CYCLOSPORINE. [Concomitant]
     Active Substance: CYCLOSPORINE

REACTIONS (4)
  - Dyspnoea [None]
  - Chronic obstructive pulmonary disease [None]
  - Hypoxia [None]
  - Pneumonia [None]

NARRATIVE: CASE EVENT DATE: 20190331
